FAERS Safety Report 8231218-8 (Version None)
Quarter: 2012Q1

REPORT INFORMATION
  Report Type: 
  Country: None (occurrence: None)
  Receive Date: 20120323
  Receipt Date: 20120323
  Transmission Date: 20120608
  Serious: Yes (Hospitalization, Disabling, Other)
  Sender: FDA-Public Use
  Company Number: None

PATIENT
  Age: 45 Year
  Sex: Female
  Weight: 61.234 kg

DRUGS (1)
  1. LUPRON [Suspect]

REACTIONS (8)
  - ARTIFICIAL MENOPAUSE [None]
  - HYPERHIDROSIS [None]
  - THYROID FUNCTION TEST ABNORMAL [None]
  - HOT FLUSH [None]
  - BLOOD OESTROGEN DECREASED [None]
  - INSOMNIA [None]
  - DEPRESSION [None]
  - ANXIETY [None]
